FAERS Safety Report 23864861 (Version 5)
Quarter: 2025Q2

REPORT INFORMATION
  Report Type: Report from Study
  Country: BR (occurrence: BR)
  Receive Date: 20240516
  Receipt Date: 20250528
  Transmission Date: 20250717
  Serious: Yes (Hospitalization, Other)
  Sender: TAKEDA
  Company Number: BR-TAKEDA-2021TUS052169

PATIENT
  Age: 41 Year
  Sex: Female
  Weight: 45 kg

DRUGS (15)
  1. TEDUGLUTIDE [Suspect]
     Active Substance: TEDUGLUTIDE
     Indication: Short-bowel syndrome
     Dosage: 0.3 MILLILITER, QD
     Dates: start: 20210817
  2. TEDUGLUTIDE [Suspect]
     Active Substance: TEDUGLUTIDE
     Indication: Functional gastrointestinal disorder
     Dosage: 0.3 MILLILITER, QD
     Dates: start: 20210920
  3. TEDUGLUTIDE [Suspect]
     Active Substance: TEDUGLUTIDE
     Dosage: 0.3 MILLILITER, QD
  4. TEDUGLUTIDE [Suspect]
     Active Substance: TEDUGLUTIDE
     Dosage: 0.3 MILLILITER, 3/WEEK
  5. TEDUGLUTIDE [Suspect]
     Active Substance: TEDUGLUTIDE
     Dosage: 0.3 MILLILITER, QD
  6. TEDUGLUTIDE [Suspect]
     Active Substance: TEDUGLUTIDE
  7. TEDUGLUTIDE [Suspect]
     Active Substance: TEDUGLUTIDE
  8. TEDUGLUTIDE [Suspect]
     Active Substance: TEDUGLUTIDE
     Dosage: 0.28 MILLILITER, QD
  9. FLAGYL [Suspect]
     Active Substance: METRONIDAZOLE\METRONIDAZOLE HYDROCHLORIDE
     Indication: Dysbiosis
  10. PFIZER-BIONTECH COVID-19 VACCINE [Suspect]
     Active Substance: TOZINAMERAN
     Indication: COVID-19 immunisation
  11. BUTYLSCOPOLAMINE BROMIDE\METAMIZOLE SODIUM [Concomitant]
     Active Substance: BUTYLSCOPOLAMINE BROMIDE\METAMIZOLE SODIUM
  12. DIMETHICONE [Concomitant]
     Active Substance: DIMETHICONE
  13. VITAMINS [Concomitant]
     Active Substance: VITAMINS
     Dosage: 50 MILLILITER, QOD
  14. DEPO-PROVERA [Concomitant]
     Active Substance: MEDROXYPROGESTERONE ACETATE
     Indication: Contraception
     Dosage: UNK, Q3MONTHS
  15. CALCIUM CHLORIDE\POTASSIUM CHLORIDE\SODIUM ACETATE\SODIUM CHLORIDE [Concomitant]
     Active Substance: CALCIUM CHLORIDE\POTASSIUM CHLORIDE\SODIUM ACETATE\SODIUM CHLORIDE
     Dosage: UNK UNK, 2/WEEK

REACTIONS (62)
  - Dengue fever [Unknown]
  - Malnutrition [Unknown]
  - Poor venous access [Not Recovered/Not Resolved]
  - Dyspepsia [Not Recovered/Not Resolved]
  - Weight increased [Recovering/Resolving]
  - Thirst [Unknown]
  - Dyschezia [Unknown]
  - Polyuria [Unknown]
  - Gastrointestinal disorder [Recovering/Resolving]
  - Diarrhoea [Recovered/Resolved]
  - Abdominal discomfort [Recovering/Resolving]
  - Sleep deficit [Unknown]
  - Anal incontinence [Recovering/Resolving]
  - Dysmenorrhoea [Recovered/Resolved]
  - Vaginal discharge [Recovering/Resolving]
  - Menstrual disorder [Recovering/Resolving]
  - Drug ineffective [Unknown]
  - Insurance issue [Unknown]
  - Device leakage [Unknown]
  - Syringe issue [Unknown]
  - Needle issue [Unknown]
  - Product quality issue [Unknown]
  - Product distribution issue [Unknown]
  - Product availability issue [Unknown]
  - Product preparation error [Unknown]
  - Product administration error [Unknown]
  - Inappropriate schedule of product administration [Unknown]
  - Product use issue [Unknown]
  - Off label use [Unknown]
  - Pain in extremity [Recovered/Resolved]
  - Pyrexia [Recovered/Resolved]
  - Cold sweat [Recovered/Resolved]
  - Cystitis [Recovered/Resolved]
  - Puncture site bruise [Recovered/Resolved]
  - Application site mass [Recovered/Resolved]
  - Application site acne [Recovered/Resolved]
  - Back pain [Recovering/Resolving]
  - Eating disorder [Recovering/Resolving]
  - Feeling abnormal [Recovering/Resolving]
  - Weight fluctuation [Recovering/Resolving]
  - Depressed mood [Recovering/Resolving]
  - Crying [Recovering/Resolving]
  - Mental disorder [Recovering/Resolving]
  - Gastrointestinal bacterial infection [Recovering/Resolving]
  - Rhinorrhoea [Recovered/Resolved]
  - Mean cell volume abnormal [Recovered/Resolved]
  - White blood cell disorder [Recovered/Resolved]
  - Weight decreased [Recovered/Resolved]
  - Varicose vein [Recovered/Resolved]
  - Blood magnesium increased [Recovered/Resolved]
  - Abnormal faeces [Recovering/Resolving]
  - Food intolerance [Not Recovered/Not Resolved]
  - Monocyte count decreased [Recovered/Resolved]
  - Urine analysis abnormal [Recovered/Resolved]
  - Aura [Unknown]
  - Blood potassium abnormal [Recovered/Resolved]
  - Stress [Recovered/Resolved]
  - Anxiety [Recovered/Resolved]
  - Flatulence [Recovering/Resolving]
  - Vomiting [Unknown]
  - Dyspnoea [Recovering/Resolving]
  - Abdominal pain [Recovering/Resolving]

NARRATIVE: CASE EVENT DATE: 20210923
